FAERS Safety Report 12139990 (Version 1)
Quarter: 2016Q1

REPORT INFORMATION
  Report Type: Spontaneous
  Country: US (occurrence: None)
  Receive Date: 20160302
  Receipt Date: 20160302
  Transmission Date: 20160526
  Serious: Yes (Other)
  Sender: FDA-Public Use
  Company Number: None

PATIENT
  Age: 26 Year
  Sex: Female
  Weight: 79.83 kg

DRUGS (1)
  1. WELLBUTRIN XL [Suspect]
     Active Substance: BUPROPION HYDROCHLORIDE
     Indication: MAJOR DEPRESSION
     Dosage: 150 MG 9AM PO
     Route: 048
     Dates: start: 20160107, end: 20160207

REACTIONS (7)
  - Anxiety [None]
  - Palpitations [None]
  - Fear [None]
  - Restlessness [None]
  - Panic reaction [None]
  - Paranoia [None]
  - Product substitution issue [None]

NARRATIVE: CASE EVENT DATE: 20160107
